FAERS Safety Report 4876159-9 (Version None)
Quarter: 2006Q1

REPORT INFORMATION
  Report Type: 
  Country: None (occurrence: None)
  Receive Date: 20060106
  Receipt Date: 20051228
  Transmission Date: 20060701
  Serious: No
  Sender: FDA-Public Use
  Company Number: JP200512002632

PATIENT
  Age: 51 Year
  Sex: Female

DRUGS (1)
  1. GEMZAR [Suspect]
     Indication: PANCREATIC CARCINOMA RECURRENT
     Dosage: 800 MG/M2, OTHER, INTRAVENOUS
     Route: 042
     Dates: start: 20051130

REACTIONS (1)
  - MEMORY IMPAIRMENT [None]
